FAERS Safety Report 13748991 (Version 9)
Quarter: 2018Q1

REPORT INFORMATION
  Report Type: Spontaneous
  Country: US (occurrence: US)
  Receive Date: 20170713
  Receipt Date: 20180201
  Transmission Date: 20180508
  Serious: No
  Sender: FDA-Public Use
  Company Number: US-PFIZER INC-2017283919

PATIENT
  Age: 78 Year
  Sex: Female
  Weight: 68 kg

DRUGS (15)
  1. SUTENT [Suspect]
     Active Substance: SUNITINIB MALATE
     Dosage: 50 MG, CYCLIC (EVERY DAY FOR 14 DAYS ON THEN 7 DAYS OFF)
     Route: 048
     Dates: start: 20170626
  2. VENTOLIN HFA [Concomitant]
     Active Substance: ALBUTEROL SULFATE
     Dosage: UNK (108/90)
  3. CLONAZEPAM. [Concomitant]
     Active Substance: CLONAZEPAM
     Dosage: 0.5 MG, UNK
  4. SUTENT [Suspect]
     Active Substance: SUNITINIB MALATE
     Dosage: 50 MG, CYCLIC (EVERY DAY FOR 14 DAYS ON 7 DAYS OFF)
     Route: 048
     Dates: start: 20170628, end: 20171206
  5. AMLODIPINE BESILATE [Concomitant]
     Active Substance: AMLODIPINE BESYLATE
     Dosage: 10 MG, UNK
  6. COLCRYS [Concomitant]
     Active Substance: COLCHICINE
     Dosage: 0.6 MG, UNK
  7. LISINOPRIL. [Concomitant]
     Active Substance: LISINOPRIL
     Dosage: 5 MG, UNK
  8. TUMS [Concomitant]
     Active Substance: CALCIUM CARBONATE
     Dosage: 500 MG, UNK
  9. DRONABINOL. [Concomitant]
     Active Substance: DRONABINOL
     Dosage: UNK
  10. SUTENT [Suspect]
     Active Substance: SUNITINIB MALATE
     Dosage: 50 MG, CYCLIC (1 CAPSULE EVERY DAY FOR 14 DAYS ON 7 DAYS OFF)
     Route: 048
     Dates: start: 20170627
  11. TYLENOL [Concomitant]
     Active Substance: ACETAMINOPHEN
     Dosage: 325 MG, UNK
  12. CARVEDILOL. [Concomitant]
     Active Substance: CARVEDILOL
     Dosage: 3.125 MG, UNK
  13. SUTENT [Suspect]
     Active Substance: SUNITINIB MALATE
     Indication: METASTATIC RENAL CELL CARCINOMA
     Dosage: 50 MG, CYCLIC (EVERY DAY FOR 14 DAYS ON THEN 7 DAYS OFF)
     Route: 048
     Dates: start: 20170623
  14. ASPIRIN. [Concomitant]
     Active Substance: ASPIRIN
     Dosage: 81 MG, UNK
  15. AZITHROMYCIN ANHYDROUS. [Concomitant]
     Active Substance: AZITHROMYCIN ANHYDROUS
     Dosage: UNK

REACTIONS (21)
  - Flatulence [Not Recovered/Not Resolved]
  - Joint swelling [Unknown]
  - Blister [Recovered/Resolved]
  - Rash [Recovered/Resolved]
  - Pain [Unknown]
  - Gait disturbance [Unknown]
  - Diarrhoea [Recovered/Resolved]
  - Abdominal discomfort [Not Recovered/Not Resolved]
  - Weight decreased [Unknown]
  - Blood uric acid abnormal [Unknown]
  - Dry skin [Unknown]
  - Peripheral swelling [Not Recovered/Not Resolved]
  - Gout [Unknown]
  - Fatigue [Not Recovered/Not Resolved]
  - Nausea [Not Recovered/Not Resolved]
  - Decreased appetite [Not Recovered/Not Resolved]
  - Insomnia [Not Recovered/Not Resolved]
  - Rash macular [Not Recovered/Not Resolved]
  - Ageusia [Not Recovered/Not Resolved]
  - Dysuria [Not Recovered/Not Resolved]
  - Blood test abnormal [Recovered/Resolved]

NARRATIVE: CASE EVENT DATE: 2017
